FAERS Safety Report 15266391 (Version 1)
Quarter: 2020Q3

REPORT INFORMATION
  Report Type: Report from Study
  Country: AU (occurrence: AU)
  Receive Date: 20180810
  Receipt Date: 20180810
  Transmission Date: 20201105
  Serious: Yes (Hospitalization)
  Sender: FDA-Public Use
  Company Number: AU-ASTRAZENECA-2018SE97007

PATIENT
  Age: 24452 Day
  Sex: Female

DRUGS (4)
  1. DURVALUMAB. [Suspect]
     Active Substance: DURVALUMAB
     Indication: OVARIAN CANCER
     Route: 042
     Dates: start: 20180719
  2. CARBOPLATIN. [Suspect]
     Active Substance: CARBOPLATIN
     Indication: OVARIAN CANCER
     Route: 042
     Dates: start: 20180719
  3. TREMELIMUMAB. [Suspect]
     Active Substance: TREMELIMUMAB
     Indication: OVARIAN CANCER
     Route: 042
     Dates: start: 20180719
  4. PACLITAXEL. [Suspect]
     Active Substance: PACLITAXEL
     Indication: OVARIAN CANCER
     Route: 042
     Dates: start: 20180719

REACTIONS (1)
  - Febrile neutropenia [Recovered/Resolved]

NARRATIVE: CASE EVENT DATE: 20180730
